FAERS Safety Report 13571516 (Version 2)
Quarter: 2017Q2

REPORT INFORMATION
  Report Type: Spontaneous
  Country: US (occurrence: US)
  Receive Date: 20170523
  Receipt Date: 20170622
  Transmission Date: 20170830
  Serious: No
  Sender: FDA-Public Use
  Company Number: US-PFIZER INC-2017220161

PATIENT
  Sex: Female

DRUGS (1)
  1. XELJANZ XR [Suspect]
     Active Substance: TOFACITINIB CITRATE
     Dosage: 11 MG, UNK

REACTIONS (6)
  - Neck pain [Recovered/Resolved]
  - Erythema [Not Recovered/Not Resolved]
  - Joint swelling [Recovering/Resolving]
  - Synovitis [Recovering/Resolving]
  - Back pain [Recovered/Resolved]
  - Papule [Not Recovered/Not Resolved]
